FAERS Safety Report 9383891 (Version 1)
Quarter: 2013Q3

REPORT INFORMATION
  Report Type: Spontaneous
  Country: AU (occurrence: AU)
  Receive Date: 20130705
  Receipt Date: 20130705
  Transmission Date: 20140515
  Serious: Yes (Hospitalization, Other)
  Sender: FDA-Public Use
  Company Number: AU-MERCK-1306AUS011990

PATIENT
  Age: 51 Year
  Sex: Male
  Weight: 59.7 kg

DRUGS (2)
  1. RIBAVIRIN [Suspect]
     Dosage: 1000 MG
     Route: 048
     Dates: start: 20120622, end: 20120907
  2. PEGINTERFERON ALFA-2A [Suspect]
     Dosage: 180 MICROGRAM, QW
     Route: 058
     Dates: start: 20120622, end: 20120907

REACTIONS (1)
  - Pancytopenia [Not Recovered/Not Resolved]
